FAERS Safety Report 7580999-5 (Version None)
Quarter: 2011Q2

REPORT INFORMATION
  Report Type: 
  Country: None (occurrence: None)
  Receive Date: 20110629
  Receipt Date: 20110620
  Transmission Date: 20111010
  Serious: Yes (Hospitalization, Other)
  Sender: FDA-Public Use
  Company Number: US-ASTRAZENECA-2011SE37633

PATIENT
  Age: 671 Month
  Sex: Male

DRUGS (9)
  1. TENORMIN [Suspect]
     Route: 048
  2. ASPIRIN [Concomitant]
  3. ZANAFLEX [Concomitant]
  4. SKELAXIN [Concomitant]
  5. PRAVASTATIN [Concomitant]
  6. FLUOXETINE HCL [Concomitant]
  7. BACLOFEN [Concomitant]
  8. FLEXERIL [Concomitant]
  9. DIAZAPAM [Concomitant]

REACTIONS (27)
  - SLEEP APNOEA SYNDROME [None]
  - NEOPLASM MALIGNANT [None]
  - HIP ARTHROPLASTY [None]
  - MENTAL DISORDER [None]
  - PULMONARY THROMBOSIS [None]
  - BACK PAIN [None]
  - LYMPHOEDEMA [None]
  - ARTHRALGIA [None]
  - CHRONIC OBSTRUCTIVE PULMONARY DISEASE [None]
  - STAPHYLOCOCCAL INFECTION [None]
  - URINARY INCONTINENCE [None]
  - HYPOKINESIA [None]
  - SURGERY [None]
  - PULMONARY FIBROSIS [None]
  - SPINAL LAMINECTOMY [None]
  - GROIN PAIN [None]
  - ANXIETY [None]
  - ASTHMA [None]
  - MALE GENITAL TRACT OPERATION [None]
  - ELECTROCARDIOGRAM ABNORMAL [None]
  - PAIN IN EXTREMITY [None]
  - HIP SURGERY [None]
  - JOINT INJURY [None]
  - MUSCLE SPASMS [None]
  - DEPRESSION [None]
  - BACK DISORDER [None]
  - MENTAL IMPAIRMENT [None]
